FAERS Safety Report 21369685 (Version 1)
Quarter: 2022Q3

REPORT INFORMATION
  Report Type: Spontaneous
  Country: DE (occurrence: DE)
  Receive Date: 20220923
  Receipt Date: 20220923
  Transmission Date: 20221027
  Serious: Yes (Hospitalization, Other)
  Sender: FDA-Public Use
  Company Number: DE-Suven-000017

PATIENT

DRUGS (8)
  1. CHLOROQUINE PHOSPHATE [Suspect]
     Active Substance: CHLOROQUINE PHOSPHATE
  2. DIAZEPAM [Suspect]
     Active Substance: DIAZEPAM
  3. BUTYLSCOPOLAMINE [Suspect]
     Active Substance: BUTYLSCOPOLAMINE
  4. LORAZEPAM [Suspect]
     Active Substance: LORAZEPAM
  5. METOCLOPRAMIDE [Suspect]
     Active Substance: METOCLOPRAMIDE
  6. NORDAZEPAM [Suspect]
     Active Substance: NORDAZEPAM
  7. PHENYLPROPANOLAMINE [Suspect]
     Active Substance: PHENYLPROPANOLAMINE
  8. DRONABINOL [Suspect]
     Active Substance: DRONABINOL

REACTIONS (5)
  - Suicide attempt [Unknown]
  - Electrocardiogram QRS complex prolonged [Unknown]
  - Intentional overdose [Unknown]
  - Electrocardiogram QT prolonged [Unknown]
  - Toxicity to various agents [Unknown]
